FAERS Safety Report 5411654-5 (Version None)
Quarter: 2007Q3

REPORT INFORMATION
  Report Type: 
  Country: None (occurrence: None)
  Receive Date: 20070810
  Receipt Date: 20070731
  Transmission Date: 20080115
  Serious: Yes (Other)
  Sender: FDA-Public Use
  Company Number: GB-PFIZER INC-2007064448

PATIENT
  Sex: Male

DRUGS (7)
  1. EXUBERA [Suspect]
     Indication: DIABETES MELLITUS
     Route: 055
  2. ACETYLSALICYLIC ACID SRT [Concomitant]
  3. ATORVASTATIN CALCIUM [Concomitant]
  4. DEPAKOTE [Concomitant]
  5. ALL OTHER THERAPEUTIC PRODUCTS [Concomitant]
  6. RAMIPRIL [Concomitant]
  7. VENLAFAXINE HCL [Concomitant]

REACTIONS (1)
  - HYPERVENTILATION [None]
